FAERS Safety Report 5533357-9 (Version None)
Quarter: 2007Q4

REPORT INFORMATION
  Report Type: 
  Country: None (occurrence: None)
  Receive Date: 20071128
  Receipt Date: 20071114
  Transmission Date: 20080405
  Serious: Yes (Other)
  Sender: FDA-Public Use
  Company Number: 164241USA

PATIENT
  Age: 65 Year
  Sex: Female

DRUGS (8)
  1. DAUNORUBICIN HYDROCHLORIDE [Suspect]
     Indication: ACUTE MYELOID LEUKAEMIA
  2. ETOPOSIDE [Suspect]
     Indication: ACUTE MYELOID LEUKAEMIA
  3. FLUDARABINE PHOSPHATE [Suspect]
     Indication: ACUTE MYELOID LEUKAEMIA
  4. CYTARABINE [Suspect]
  5. CYCLOPHOSPHAMIDE [Suspect]
  6. TACROLIMUS [Suspect]
  7. MYCOPHENOLATE MOFETIL [Suspect]
  8. METHOTREXATE [Suspect]

REACTIONS (4)
  - GRAFT VERSUS HOST DISEASE [None]
  - HERPES VIRUS INFECTION [None]
  - LIP AND/OR ORAL CAVITY CANCER [None]
  - STEM CELL TRANSPLANT [None]
